FAERS Safety Report 10184771 (Version 4)
Quarter: 2014Q3

REPORT INFORMATION
  Report Type: Spontaneous
  Country: JP (occurrence: JP)
  Receive Date: 20140521
  Receipt Date: 20140901
  Transmission Date: 20150326
  Serious: Yes (Death, Life-Threatening, Hospitalization, Other)
  Sender: FDA-Public Use
  Company Number: PHHY2014JP050361

PATIENT
  Age: 71 Year
  Sex: Female
  Weight: 60 kg

DRUGS (14)
  1. FEMARA [Suspect]
     Active Substance: LETROZOLE
     Indication: BREAST CANCER
     Dosage: 2.5 MG, DAILY
     Route: 048
     Dates: start: 20120204, end: 20140424
  2. CALCIUM [Concomitant]
     Active Substance: CALCIUM
     Dosage: UNK UKN, UNK
  3. ZOMETA [Suspect]
     Active Substance: ZOLEDRONIC ACID
     Indication: METASTASES TO BONE MARROW
     Dosage: 5 MG, PER ADMINISTRATION
     Route: 041
     Dates: start: 20120309, end: 20130311
  4. ZOMETA [Suspect]
     Active Substance: ZOLEDRONIC ACID
     Dosage: 3.5 MG, PER ADMINISTRATION
     Route: 041
     Dates: start: 20130312, end: 20130805
  5. ZOMETA [Suspect]
     Active Substance: ZOLEDRONIC ACID
     Dosage: 3 MG, PER ADMINISTRATION
     Route: 041
     Dates: start: 20130806, end: 20140218
  6. LOXONIN [Suspect]
     Active Substance: LOXOPROFEN SODIUM
     Indication: PROPHYLAXIS
     Dosage: 60 MG, DAILY
     Route: 048
     Dates: start: 20120308, end: 20120308
  7. HERCEPTIN [Concomitant]
     Active Substance: TRASTUZUMAB
     Indication: BREAST CANCER
     Dosage: 357.6 MG, UNK
     Dates: start: 20130108
  8. ANTIPYRETICS, ANALGESICS AND ANTI-INFLAMMATOR [Concomitant]
     Dosage: UNK UKN, UNK
  9. TRAMCET [Concomitant]
     Active Substance: ACETAMINOPHEN\TRAMADOL
     Indication: PAIN
     Dosage: 8 DF, UNK
     Route: 048
     Dates: start: 20140421
  10. OXINORM                            /07623501/ [Concomitant]
     Indication: PAIN
     Dosage: UNK UKN, UNK
     Route: 048
     Dates: start: 20120308, end: 20140421
  11. OXYCONTIN [Concomitant]
     Active Substance: OXYCODONE HYDROCHLORIDE
     Indication: PAIN
     Dosage: 22.5 MG, UNK
     Route: 048
     Dates: start: 20120308, end: 20140225
  12. TRAMAL [Concomitant]
     Active Substance: TRAMADOL
     Indication: PAIN
     Dosage: 2 DF, UNK
     Route: 048
     Dates: start: 20120308, end: 20140421
  13. CELECOX [Suspect]
     Active Substance: CELECOXIB
     Indication: PAIN
     Dosage: 300 MG, DAILY
     Route: 048
     Dates: start: 20120306
  14. AROMASIN [Suspect]
     Active Substance: EXEMESTANE
     Indication: BREAST CANCER
     Dosage: 1 DF, UNK
     Route: 048

REACTIONS (3)
  - Renal impairment [Fatal]
  - Decreased appetite [Recovering/Resolving]
  - Hypocalcaemia [Recovering/Resolving]

NARRATIVE: CASE EVENT DATE: 20121030
